FAERS Safety Report 10046888 (Version 1)
Quarter: 2014Q1

REPORT INFORMATION
  Report Type: Spontaneous
  Country: US (occurrence: None)
  Receive Date: 20140314
  Receipt Date: 20140314
  Transmission Date: 20141002
  Serious: Yes (Life-Threatening, Hospitalization)
  Sender: FDA-Public Use
  Company Number: 2014P1002006

PATIENT
  Age: 51 Year
  Sex: Male
  Weight: 85 kg

DRUGS (3)
  1. LISINOPRIL [Suspect]
     Route: 048
  2. HYDROCODONE / ACETAMINOPHEN (REMEDEINE) [Concomitant]
  3. ALPRAZOLAM [Concomitant]

REACTIONS (17)
  - Abnormal behaviour [None]
  - Hallucination, visual [None]
  - Incoherent [None]
  - Dysarthria [None]
  - Blood pressure increased [None]
  - Blood glucose increased [None]
  - Metabolic acidosis [None]
  - Renal failure acute [None]
  - Hyperkalaemia [None]
  - Rhabdomyolysis [None]
  - Confusional state [None]
  - Haemodialysis [None]
  - Azotaemia [None]
  - Uraemic encephalopathy [None]
  - Hypotension [None]
  - Overdose [None]
  - Multi-organ disorder [None]
